FAERS Safety Report 7690746-4 (Version None)
Quarter: 2011Q3

REPORT INFORMATION
  Report Type: 
  Country: None (occurrence: None)
  Receive Date: 20110812
  Receipt Date: 20101119
  Transmission Date: 20111222
  Serious: Yes (Death, Other)
  Sender: FDA-Public Use
  Company Number: ALA_01554_2011

PATIENT
  Sex: Female

DRUGS (62)
  1. DETROL [Concomitant]
  2. METOPROLOL [Concomitant]
  3. MEVACOR [Concomitant]
  4. LEVOTHYROXINE SODIUM [Concomitant]
  5. TETRACYCLINE [Concomitant]
  6. PANTOPRAZOLE [Concomitant]
  7. OXYBUTYNIN [Concomitant]
  8. ARICEPT [Concomitant]
  9. FLUCONAZOLE [Concomitant]
  10. PHENERGAN HCL [Concomitant]
  11. COZAAR [Concomitant]
  12. GABAPENTIN [Concomitant]
  13. TRAMADOL HCL [Concomitant]
  14. CIPROFLOXACIN [Concomitant]
  15. ALENDRONATE SODIUM [Concomitant]
  16. VITAMIN D [Concomitant]
  17. NABUMETONE [Concomitant]
  18. LASIX [Concomitant]
  19. LOPRESSOR [Concomitant]
  20. DICLOFEN /00372304/ [Concomitant]
  21. ARTHROTEC [Concomitant]
  22. PROPOXYPHENE HYDROCHLORIDE [Concomitant]
  23. AMOXICILLIN [Concomitant]
  24. RANITIDINE [Concomitant]
  25. PROPOXYPHENE NAPSYLATE AND ACETAMINOPHEN [Concomitant]
  26. BACITRACIN OPHTHALMIC [Concomitant]
  27. HYDROCODONE [Concomitant]
  28. CYTRA-2 [Concomitant]
  29. OMEPRAZOLE [Concomitant]
  30. CIMETIDINE [Concomitant]
  31. LIPITOR [Concomitant]
  32. SYNTHROID [Concomitant]
  33. NEURONTIN [Concomitant]
  34. TRAMADOL HYDROCHLORIDE AND ACETAMINOPHEN [Concomitant]
  35. ACTOS [Concomitant]
  36. METHOCARBAMOL [Concomitant]
  37. VIGAMOX [Concomitant]
  38. PREVPAC [Concomitant]
  39. NITROFURANTOIN [Concomitant]
  40. REGLAN [Suspect]
     Indication: GASTROOESOPHAGEAL REFLUX DISEASE
     Dosage: (5-10 MG ORAL), (5 MG ORAL)
     Route: 048
     Dates: start: 19960301, end: 20050802
  41. REGLAN [Suspect]
     Indication: GASTROOESOPHAGEAL REFLUX DISEASE
     Dosage: (5-10 MG ORAL), (5 MG ORAL)
     Route: 048
     Dates: start: 20080317, end: 20080101
  42. TRICOR [Concomitant]
  43. FOSAMAX [Concomitant]
  44. GLUCOPHAGE [Concomitant]
  45. GUANFACINE HYDROCHLORIDE [Concomitant]
  46. MECLIZINE HCL [Concomitant]
  47. NEXIUM [Concomitant]
  48. PROMETHEGAN [Concomitant]
  49. GLIMEPIRIDE [Concomitant]
  50. PERPHENAZINE [Concomitant]
  51. GLYBURIDE [Concomitant]
  52. PROTONIX [Concomitant]
  53. AMITRIPTYLINE HCL [Concomitant]
  54. ACETAMINOPHEN AND HYDROCODONE BITARTRATE [Concomitant]
  55. CEPHALEXIN [Concomitant]
  56. METOCLOPRAM [Concomitant]
  57. AMITRIPTYLINE HCL [Concomitant]
  58. ZYMAXID 0.5% [Concomitant]
  59. ZANTAC [Concomitant]
  60. PLAVIX [Concomitant]
  61. NAMENDA [Concomitant]
  62. BENADRYL [Concomitant]

REACTIONS (6)
  - EXTRAPYRAMIDAL DISORDER [None]
  - SEPSIS [None]
  - DYSKINESIA [None]
  - EMOTIONAL DISORDER [None]
  - TARDIVE DYSKINESIA [None]
  - ECONOMIC PROBLEM [None]
